FAERS Safety Report 5729638-6 (Version None)
Quarter: 2008Q2

REPORT INFORMATION
  Report Type: 
  Country: None (occurrence: None)
  Receive Date: 20080501
  Receipt Date: 20080416
  Transmission Date: 20081010
  Serious: Yes (Hospitalization)
  Sender: FDA-Public Use
  Company Number: 2008000701

PATIENT

DRUGS (1)
  1. TARCEVA [Suspect]
     Indication: DRUG USE FOR UNKNOWN INDICATION
     Dates: start: 20070901

REACTIONS (3)
  - CARDIAC FAILURE [None]
  - ENTERITIS [None]
  - PULMONARY OEDEMA [None]
